FAERS Safety Report 12843427 (Version 1)
Quarter: 2016Q4

REPORT INFORMATION
  Report Type: Spontaneous
  Country: US (occurrence: US)
  Receive Date: 20161013
  Receipt Date: 20161013
  Transmission Date: 20170207
  Serious: Yes (Other)
  Sender: FDA-Public Use
  Company Number: US-WEST-WARD PHARMACEUTICALS CORP.-US-H14001-16-02067

PATIENT
  Age: 64 Year
  Sex: Male
  Weight: 106.69 kg

DRUGS (2)
  1. IPRATROPIUM BROMIDE. [Suspect]
     Active Substance: IPRATROPIUM BROMIDE
     Indication: NASAL CONGESTION
     Dosage: 2 SPRAYS TO EACH NOSTRIL
     Route: 045
     Dates: start: 20160928, end: 20160929
  2. IPRATROPIUM BROMIDE. [Suspect]
     Active Substance: IPRATROPIUM BROMIDE
     Indication: PULMONARY CONGESTION

REACTIONS (4)
  - Condition aggravated [Not Recovered/Not Resolved]
  - Tremor [Recovered/Resolved]
  - Urinary retention [Not Recovered/Not Resolved]
  - Chills [Recovered/Resolved]

NARRATIVE: CASE EVENT DATE: 201609
